FAERS Safety Report 16351428 (Version 1)
Quarter: 2019Q2

REPORT INFORMATION
  Report Type: Spontaneous
  Country: FR (occurrence: FR)
  Receive Date: 20190524
  Receipt Date: 20190524
  Transmission Date: 20190711
  Serious: Yes (Other)
  Sender: FDA-Public Use
  Company Number: FR-GLAXOSMITHKLINE-FR2019089583

PATIENT
  Age: 4 Year
  Sex: Female
  Weight: 20 kg

DRUGS (2)
  1. MICROPAKINE [Suspect]
     Active Substance: VALPROATE SODIUM
     Indication: EPILEPSY
     Dosage: 30 MG/KG, QD
     Route: 048
  2. LAMICTAL [Suspect]
     Active Substance: LAMOTRIGINE
     Indication: EPILEPSY
     Dosage: SEE COMMENTS
     Route: 048
     Dates: start: 201810

REACTIONS (3)
  - Tremor [Recovered/Resolved]
  - Extrapyramidal disorder [Recovered/Resolved]
  - Akinesia [Recovered/Resolved]

NARRATIVE: CASE EVENT DATE: 201902
